FAERS Safety Report 7304821-7 (Version None)
Quarter: 2011Q1

REPORT INFORMATION
  Report Type: 
  Country: None (occurrence: None)
  Receive Date: 20110222
  Receipt Date: 20110218
  Transmission Date: 20110831
  Serious: No
  Sender: FDA-Public Use
  Company Number: US-PFIZER INC-2011036778

PATIENT
  Sex: Female
  Weight: 81.633 kg

DRUGS (7)
  1. OMEPRAZOLE [Suspect]
     Indication: DYSPEPSIA
     Dosage: UNK
  2. CELEBREX [Suspect]
     Indication: ARTHRITIS
     Dosage: 200 MG, 1X/DAY
     Route: 048
     Dates: start: 20101101, end: 20110201
  3. CELEBREX [Suspect]
     Indication: KNEE ARTHROPLASTY
  4. CELEBREX [Suspect]
     Indication: INFLAMMATION
  5. DEPLIN [Concomitant]
     Indication: DEPRESSION
     Dosage: UNK
  6. OMEPRAZOLE [Suspect]
     Indication: PAIN
  7. ATORVASTATIN CALCIUM [Concomitant]
     Indication: BLOOD CHOLESTEROL ABNORMAL
     Dosage: UNK

REACTIONS (3)
  - ABDOMINAL PAIN UPPER [None]
  - NAUSEA [None]
  - ABDOMINAL DISCOMFORT [None]
